FAERS Safety Report 15249942 (Version 1)
Quarter: 2018Q3

REPORT INFORMATION
  Report Type: Report from Study
  Country: RO (occurrence: RO)
  Receive Date: 20180807
  Receipt Date: 20180807
  Transmission Date: 20181010
  Serious: Yes (Other)
  Sender: FDA-Public Use
  Company Number: RO-ROCHE-2164773

PATIENT
  Age: 79 Year
  Sex: Male

DRUGS (1)
  1. ALTEPLASE. [Suspect]
     Active Substance: ALTEPLASE
     Indication: ISCHAEMIC STROKE
     Dosage: 15 MINUTES
     Route: 042

REACTIONS (2)
  - Overdose [Unknown]
  - Coagulopathy [Recovering/Resolving]
